FAERS Safety Report 14568647 (Version 5)
Quarter: 2018Q2

REPORT INFORMATION
  Report Type: Report from Study
  Country: None (occurrence: ES)
  Receive Date: 20180223
  Receipt Date: 20180618
  Transmission Date: 20180711
  Serious: Yes (Hospitalization, Other)
  Sender: FDA-Public Use
  Company Number: ES-ABBVIE-18K-144-2266323-00

PATIENT
  Age: 80 Year
  Sex: Male

DRUGS (2)
  1. DUODOPA [Suspect]
     Active Substance: CARBIDOPA\LEVODOPA
     Dosage: DOSE DECREASED
     Route: 050
     Dates: start: 201804, end: 20180421
  2. DUODOPA [Suspect]
     Active Substance: CARBIDOPA\LEVODOPA
     Indication: PARKINSON^S DISEASE
     Route: 050
     Dates: start: 20150827, end: 2018

REACTIONS (10)
  - Freezing phenomenon [Not Recovered/Not Resolved]
  - Melaena [Recovering/Resolving]
  - Gastroduodenal ulcer [Recovered/Resolved]
  - Gastroduodenal haemorrhage [Recovered/Resolved]
  - On and off phenomenon [Not Recovered/Not Resolved]
  - Hallucination [Not Recovered/Not Resolved]
  - Disorientation [Not Recovered/Not Resolved]
  - Dysphagia [Not Recovered/Not Resolved]
  - Off label use [Unknown]
  - Aggression [Recovering/Resolving]

NARRATIVE: CASE EVENT DATE: 2018
